FAERS Safety Report 6301914-8 (Version None)
Quarter: 2009Q3

REPORT INFORMATION
  Report Type: 
  Country: None (occurrence: None)
  Receive Date: 20090807
  Receipt Date: 20090727
  Transmission Date: 20100115
  Serious: Yes (Hospitalization)
  Sender: FDA-Public Use
  Company Number: US-JNJFOC-20090709550

PATIENT
  Age: 17 Year
  Sex: Male
  Weight: 58.56 kg

DRUGS (9)
  1. REMICADE [Suspect]
     Indication: COLITIS ULCERATIVE
     Dosage: 5 MG/KG; WEEK 0
     Route: 042
  2. AZATHIOPRINE [Concomitant]
  3. CIPRO [Concomitant]
  4. FLAGYL [Concomitant]
  5. FLUCONAZOLE [Concomitant]
  6. HYDROMORPHONE HCL [Concomitant]
  7. MESALAMINE [Concomitant]
  8. METHYLPREDNISOLONE [Concomitant]
  9. TPN [Concomitant]

REACTIONS (2)
  - ARTHRALGIA [None]
  - COLITIS ULCERATIVE [None]
